FAERS Safety Report 23797879 (Version 1)
Quarter: 2024Q2

REPORT INFORMATION
  Report Type: Other
  Country: US (occurrence: US)
  Receive Date: 20240430
  Receipt Date: 20240430
  Transmission Date: 20240716
  Serious: Yes (Life-Threatening, Hospitalization, Other)
  Sender: FDA-Public Use
  Company Number: US-Chemistry + Health FZ LLC-2156271

PATIENT
  Age: 71 Year
  Sex: Female

DRUGS (3)
  1. AMITRIPTYLINE HYDROCHLORIDE [Suspect]
     Active Substance: AMITRIPTYLINE HYDROCHLORIDE
     Indication: Depression
     Route: 065
  2. CARDIZEM [Interacting]
     Active Substance: DILTIAZEM HYDROCHLORIDE
     Route: 065
  3. CIMETIDINE [Interacting]
     Active Substance: CIMETIDINE
     Route: 065

REACTIONS (10)
  - Unresponsive to stimuli [Unknown]
  - Drug interaction [Unknown]
  - Electrocardiogram QRS complex prolonged [Recovered/Resolved]
  - Bundle branch block right [Unknown]
  - Toxicity to various agents [Unknown]
  - Sinus tachycardia [Recovered/Resolved]
  - Hypotension [Unknown]
  - Tachycardia [Recovered/Resolved]
  - Confusional state [Unknown]
  - Arrhythmia [Recovered/Resolved]
